FAERS Safety Report 16573700 (Version 1)
Quarter: 2019Q3

REPORT INFORMATION
  Report Type: Spontaneous
  Country: ES (occurrence: ES)
  Receive Date: 20190715
  Receipt Date: 20190715
  Transmission Date: 20191004
  Serious: Yes (Hospitalization)
  Sender: FDA-Public Use
  Company Number: ES-JNJFOC-20190706124

PATIENT
  Age: 84 Year
  Sex: Female

DRUGS (8)
  1. SEPTRIN [Concomitant]
     Active Substance: SULFAMETHOXAZOLE\TRIMETHOPRIM
     Dosage: 4 COMP/ 7 D?AS
     Route: 048
     Dates: start: 20180912
  2. ADIRO [Concomitant]
     Active Substance: ASPIRIN
     Dosage: 1 COMP/ 24 H
     Route: 048
     Dates: start: 20171030
  3. ESCITALOPRAM [Concomitant]
     Active Substance: ESCITALOPRAM OXALATE
     Indication: DEPRESSION
     Route: 048
     Dates: start: 20180912
  4. CANDESARTAN. [Concomitant]
     Active Substance: CANDESARTAN
     Indication: HYPERTENSION
     Dosage: 1 COMP/ 24 HORAS
     Route: 048
     Dates: start: 20170619
  5. METFORMIN [Concomitant]
     Active Substance: METFORMIN HYDROCHLORIDE
     Indication: HYPERGLYCAEMIA
     Dosage: 1 COMP/ 12 HORAS
     Dates: start: 20160801
  6. BISOPROLOL [Concomitant]
     Active Substance: BISOPROLOL
     Dosage: 1 COMP/24 H
     Dates: start: 20180103
  7. IMBRUVICA [Suspect]
     Active Substance: IBRUTINIB
     Indication: CHRONIC LYMPHOCYTIC LEUKAEMIA
     Dosage: 3 COMP / 24 HORAS
     Route: 048
     Dates: start: 20171110, end: 20190514
  8. ACICLOVIR [Concomitant]
     Active Substance: ACYCLOVIR
     Dosage: 1 COMP/ 24 HORAS
     Dates: start: 20180912

REACTIONS (2)
  - Pericardial effusion [Recovering/Resolving]
  - Serositis [Recovering/Resolving]

NARRATIVE: CASE EVENT DATE: 20190514
